FAERS Safety Report 8139485-6 (Version None)
Quarter: 2012Q1

REPORT INFORMATION
  Report Type: 
  Country: None (occurrence: None)
  Receive Date: 20120215
  Receipt Date: 20120213
  Transmission Date: 20120608
  Serious: Yes (Hospitalization)
  Sender: FDA-Public Use
  Company Number: ES-PFIZER INC-2012039244

PATIENT
  Age: 51 Year
  Sex: Female

DRUGS (1)
  1. VARENICLINE TARTRATE [Suspect]
     Indication: TOBACCO ABUSE
     Dosage: 0.5 MG, UNK
     Route: 048
     Dates: start: 20111006, end: 20111202

REACTIONS (2)
  - ACUTE PSYCHOSIS [None]
  - MANIA [None]
